FAERS Safety Report 8078725-9 (Version None)
Quarter: 2012Q1

REPORT INFORMATION
  Report Type: 
  Country: None (occurrence: None)
  Receive Date: 20120127
  Receipt Date: 20110107
  Transmission Date: 20120608
  Serious: No
  Sender: FDA-Public Use
  Company Number: US-ABBOTT-11P-163-0696322-00

PATIENT
  Sex: Female
  Weight: 103.97 kg

DRUGS (4)
  1. HUMIRA [Suspect]
     Route: 058
     Dates: start: 20101001, end: 20101201
  2. UNKNOWN VITAMINS [Concomitant]
     Indication: PRODUCT USED FOR UNKNOWN INDICATION
     Dosage: ONCE IN A WHILE IF REMEMBERS
  3. HUMIRA [Suspect]
     Indication: PSORIASIS
     Route: 058
     Dates: start: 20091001, end: 20100901
  4. HUMIRA [Suspect]
     Route: 058
     Dates: start: 20110103

REACTIONS (8)
  - COUGH [None]
  - PHARYNGEAL OEDEMA [None]
  - PHARYNGITIS STREPTOCOCCAL [None]
  - INFECTION [None]
  - RASH GENERALISED [None]
  - PRURITUS [None]
  - RASH [None]
  - APHONIA [None]
